FAERS Safety Report 19341411 (Version 1)
Quarter: 2021Q2

REPORT INFORMATION
  Report Type: Spontaneous
  Country: US (occurrence: US)
  Receive Date: 20210530
  Receipt Date: 20210530
  Transmission Date: 20210717
  Serious: Yes (Other)
  Sender: FDA-Public Use
  Company Number: US-PURDUE-USA-2020-0196604

PATIENT
  Sex: Male

DRUGS (2)
  1. HEROIN [Suspect]
     Active Substance: DIAMORPHINE
     Indication: INTERVERTEBRAL DISC PROTRUSION
     Dosage: UNK, UNK
     Route: 065
     Dates: start: 2013
  2. OXYCONTIN [Suspect]
     Active Substance: OXYCODONE HYDROCHLORIDE
     Indication: INTERVERTEBRAL DISC PROTRUSION
     Dosage: UNK, UNK
     Route: 048
     Dates: start: 2012, end: 2013

REACTIONS (4)
  - Depression [Unknown]
  - Mental disorder [Unknown]
  - Anxiety [Unknown]
  - Dependence [Unknown]
